FAERS Safety Report 5640471-6 (Version None)
Quarter: 2008Q1

REPORT INFORMATION
  Report Type: 
  Country: None (occurrence: None)
  Receive Date: 20080227
  Receipt Date: 20080221
  Transmission Date: 20080703
  Serious: Yes (Other)
  Sender: FDA-Public Use
  Company Number: CA-JNJFOC-20080205704

PATIENT
  Sex: Male
  Weight: 86.64 kg

DRUGS (3)
  1. REMICADE [Suspect]
     Indication: CROHN'S DISEASE
  2. BENADRYL [Concomitant]
     Indication: PREMEDICATION
     Route: 048
  3. TYLENOL (CAPLET) [Concomitant]
     Indication: PREMEDICATION
     Route: 048

REACTIONS (5)
  - DYSPNOEA EXERTIONAL [None]
  - HAEMATOCHEZIA [None]
  - HEADACHE [None]
  - LETHARGY [None]
  - NAUSEA [None]
